FAERS Safety Report 10789283 (Version 1)
Quarter: 2015Q1

REPORT INFORMATION
  Report Type: Spontaneous
  Country: US (occurrence: US)
  Receive Date: 20150212
  Receipt Date: 20150212
  Transmission Date: 20150721
  Serious: No
  Sender: FDA-Public Use
  Company Number: US-GLAXOSMITHKLINE-A1077329A

PATIENT

DRUGS (4)
  1. FLOVENT [Suspect]
     Active Substance: FLUTICASONE PROPIONATE
     Indication: EMPHYSEMA
  2. FLOVENT [Suspect]
     Active Substance: FLUTICASONE PROPIONATE
     Indication: DYSPNOEA
  3. ADVAIR DISKUS [Suspect]
     Active Substance: FLUTICASONE PROPIONATE\SALMETEROL XINAFOATE
     Indication: PRODUCT USED FOR UNKNOWN INDICATION
     Dosage: 100/50 MCG
     Dates: start: 20100317
  4. FLOVENT [Suspect]
     Active Substance: FLUTICASONE PROPIONATE
     Indication: CHRONIC OBSTRUCTIVE PULMONARY DISEASE
     Dosage: INH 220MCG
     Route: 055
     Dates: start: 20120922

REACTIONS (2)
  - Drug administration error [Unknown]
  - Cardiac disorder [Unknown]
